FAERS Safety Report 7247106-X (Version None)
Quarter: 2011Q1

REPORT INFORMATION
  Report Type: 
  Country: None (occurrence: None)
  Receive Date: 20110127
  Receipt Date: 20100520
  Transmission Date: 20110831
  Serious: No
  Sender: FDA-Public Use
  Company Number: US-BAUSCH-2010BL002746

PATIENT
  Age: 77 Year
  Sex: Female

DRUGS (2)
  1. ALAWAY [Suspect]
     Indication: OCULAR HYPERAEMIA
     Route: 047
     Dates: start: 20100519, end: 20100519
  2. ALAWAY [Suspect]
     Indication: EYE PRURITUS
     Route: 047
     Dates: start: 20100519, end: 20100519

REACTIONS (6)
  - PHARYNGEAL OEDEMA [None]
  - ARTHRALGIA [None]
  - MALAISE [None]
  - HOT FLUSH [None]
  - DIZZINESS [None]
  - DRUG HYPERSENSITIVITY [None]
